FAERS Safety Report 8674999 (Version 3)
Quarter: 2013Q4

REPORT INFORMATION
  Report Type: Spontaneous
  Country: ES (occurrence: ES)
  Receive Date: 20120720
  Receipt Date: 20131031
  Transmission Date: 20140711
  Serious: Yes (Hospitalization, Other)
  Sender: FDA-Public Use
  Company Number: ES-009507513-2012SP012637

PATIENT
  Age: 40 Year
  Sex: Female

DRUGS (3)
  1. POLARAMINE [Suspect]
     Indication: MEDICAL DIET
     Dosage: 1 MG, BID
     Route: 048
     Dates: start: 20120305, end: 20120310
  2. NASONEX [Suspect]
     Indication: RHINITIS ALLERGIC
     Dosage: 1 PUFF IN EACH NOSTRIL PER DAY
     Route: 045
     Dates: start: 20120305, end: 2012
  3. FOLIC ACID [Concomitant]
     Indication: MEDICAL DIET
     Dosage: GESTAGYN  DURING PREGNANCY
     Route: 048
     Dates: start: 2011, end: 2012

REACTIONS (5)
  - Postpartum haemorrhage [Recovered/Resolved]
  - Haemorrhagic anaemia [Recovering/Resolving]
  - Caesarean section [Unknown]
  - Dermatitis [Recovered/Resolved]
  - Exposure during pregnancy [Recovered/Resolved]
